FAERS Safety Report 4409329-4 (Version None)
Quarter: 2004Q3

REPORT INFORMATION
  Report Type: 
  Country: None (occurrence: None)
  Receive Date: 20040722
  Receipt Date: 20040710
  Transmission Date: 20050211
  Serious: No
  Sender: FDA-Public Use
  Company Number: 2004041526

PATIENT

DRUGS (1)
  1. ZYRTEC [Suspect]

REACTIONS (1)
  - NO ADVERSE EFFECT [None]
